FAERS Safety Report 9390883 (Version 1)
Quarter: 2013Q3

REPORT INFORMATION
  Report Type: Spontaneous
  Country: US (occurrence: None)
  Receive Date: 20130705
  Receipt Date: 20130705
  Transmission Date: 20140515
  Serious: Yes (Death)
  Sender: FDA-Public Use
  Company Number: None

PATIENT
  Age: 78 Year
  Sex: 0
  Weight: 63.5 kg

DRUGS (10)
  1. MYLOTARG [Suspect]
     Indication: ACUTE MYELOID LEUKAEMIA
  2. FLUCONAZOLE [Concomitant]
  3. LEVAQUIN [Concomitant]
  4. VALTREX [Concomitant]
  5. CARDIZEM CD [Suspect]
  6. COMPAZINE [Concomitant]
  7. TRUSOPT [Concomitant]
  8. XALATAN [Concomitant]
  9. ALPHAGAN [Concomitant]
  10. OMEPRAZOLE [Concomitant]

REACTIONS (10)
  - Pyrexia [None]
  - Nausea [None]
  - Vomiting [None]
  - Fatigue [None]
  - Pleural effusion [None]
  - Seizure like phenomena [None]
  - Ileus [None]
  - Electroencephalogram abnormal [None]
  - Tonic clonic movements [None]
  - Unresponsive to stimuli [None]
